FAERS Safety Report 9139944 (Version 1)
Quarter: 2013Q1

REPORT INFORMATION
  Report Type: Spontaneous
  Country: US (occurrence: US)
  Receive Date: 20130305
  Receipt Date: 20130305
  Transmission Date: 20140127
  Serious: Yes (Other)
  Sender: FDA-Public Use
  Company Number: US-PFIZER INC-2013074845

PATIENT
  Sex: Female

DRUGS (1)
  1. TENORMIN [Suspect]
     Dosage: 50 MG, UNK
     Route: 065

REACTIONS (3)
  - Fall [Unknown]
  - Ankle fracture [Unknown]
  - Adverse event [Unknown]
